FAERS Safety Report 16427001 (Version 6)
Quarter: 2019Q3

REPORT INFORMATION
  Report Type: Spontaneous
  Country: CN (occurrence: CN)
  Receive Date: 20190613
  Receipt Date: 20190910
  Transmission Date: 20191004
  Serious: Yes (Hospitalization, Other)
  Sender: FDA-Public Use
  Company Number: CN-B.I. PHARMACEUTICALS,INC./RIDGEFIELD-2019-BI-024877

PATIENT
  Age: 103 Year
  Sex: Male
  Weight: 70 kg

DRUGS (15)
  1. BACILLUS LICHENFORMIS [Concomitant]
     Indication: PRODUCT USED FOR UNKNOWN INDICATION
     Route: 048
  2. IMIPENEM AND CILASTATIN SODIUM [Concomitant]
     Active Substance: CILASTATIN SODIUM\IMIPENEM
     Indication: LUNG INFECTION
     Route: 042
     Dates: start: 20190609
  3. BETALOC [Concomitant]
     Active Substance: METOPROLOL TARTRATE
     Route: 048
     Dates: start: 1979
  4. BETALOC [Concomitant]
     Active Substance: METOPROLOL TARTRATE
     Indication: HYPERTENSION
     Route: 048
     Dates: start: 20170520
  5. MUCOSOLVAN [Concomitant]
     Active Substance: AMBROXOL HYDROCHLORIDE
     Indication: PRODUCTIVE COUGH
     Route: 065
     Dates: start: 20170517
  6. ADALAT [Concomitant]
     Active Substance: NIFEDIPINE
     Indication: HYPERTENSION
     Route: 048
     Dates: start: 1979
  7. OMEPRAZOLE. [Concomitant]
     Active Substance: OMEPRAZOLE
     Indication: PRODUCT USED FOR UNKNOWN INDICATION
     Route: 065
  8. RIVAROXABAN [Concomitant]
     Active Substance: RIVAROXABAN
     Indication: ATRIAL FIBRILLATION
     Route: 048
  9. PRADAXA [Suspect]
     Active Substance: DABIGATRAN ETEXILATE MESYLATE
     Indication: ATRIAL FIBRILLATION
     Route: 048
     Dates: start: 2017, end: 20190516
  10. TIENAM [Concomitant]
     Active Substance: CILASTATIN SODIUM\IMIPENEM
     Indication: LUNG INFECTION
     Route: 065
     Dates: start: 20170517
  11. NOVOLIN [Concomitant]
     Active Substance: INSULIN HUMAN
     Indication: TYPE 2 DIABETES MELLITUS
     Dosage: ROUTE:IH
     Route: 050
     Dates: start: 20190529
  12. HEPARIN [Concomitant]
     Active Substance: HEPARIN SODIUM
     Indication: PRODUCT USED FOR UNKNOWN INDICATION
     Route: 065
  13. ENOXAPARIN SODIUM. [Concomitant]
     Active Substance: ENOXAPARIN SODIUM
     Indication: ATRIAL FIBRILLATION
     Dosage: ROUTE: IH
     Route: 050
     Dates: start: 20190519
  14. PRADAXA [Suspect]
     Active Substance: DABIGATRAN ETEXILATE MESYLATE
     Indication: CORONARY ARTERY DISEASE
  15. ACARBOSE. [Concomitant]
     Active Substance: ACARBOSE
     Indication: TYPE 2 DIABETES MELLITUS
     Route: 048
     Dates: start: 2012

REACTIONS (3)
  - Melaena [Recovered/Resolved]
  - Cholecystitis [Recovered/Resolved]
  - Appendicitis [Recovered/Resolved]

NARRATIVE: CASE EVENT DATE: 20190517
